FAERS Safety Report 7001867-3 (Version None)
Quarter: 2010Q3

REPORT INFORMATION
  Report Type: 
  Country: None (occurrence: None)
  Receive Date: 20100920
  Receipt Date: 20100913
  Transmission Date: 20110219
  Serious: Yes (Life-Threatening, Other)
  Sender: FDA-Public Use
  Company Number: CA-MERCK-1009USA03239

PATIENT
  Age: 51 Year
  Sex: Male
  Weight: 55 kg

DRUGS (1)
  1. ZETIA [Suspect]
     Route: 048

REACTIONS (2)
  - EPISTAXIS [None]
  - PLATELET COUNT DECREASED [None]
